FAERS Safety Report 4906034-2 (Version None)
Quarter: 2006Q1

REPORT INFORMATION
  Report Type: 
  Country: None (occurrence: None)
  Receive Date: 20060209
  Receipt Date: 20060202
  Transmission Date: 20060701
  Serious: Yes (Death)
  Sender: FDA-Public Use
  Company Number: PL-JNJFOC-20060201135

PATIENT
  Age: 82 Year
  Sex: Male
  Weight: 65 kg

DRUGS (3)
  1. REOPRO [Suspect]
     Route: 042
  2. ACETYLSALICYLIC ACID SRT [Concomitant]
  3. HEPARIN [Concomitant]

REACTIONS (3)
  - BLOOD PRESSURE DECREASED [None]
  - CARDIAC DEATH [None]
  - CARDIOVASCULAR DISORDER [None]
